FAERS Safety Report 7161440-3 (Version None)
Quarter: 2010Q4

REPORT INFORMATION
  Report Type: 
  Country: None (occurrence: None)
  Receive Date: 20101215
  Receipt Date: 20101201
  Transmission Date: 20110411
  Serious: Yes (Hospitalization, Disabling, Other)
  Sender: FDA-Public Use
  Company Number: PHHY2010FR82422

PATIENT
  Sex: Female

DRUGS (8)
  1. VOLTARENE L.P. [Suspect]
     Dosage: 100 MG
     Dates: start: 20100410, end: 20100823
  2. DICOFENAC BIOGRAN [Suspect]
     Indication: BACK PAIN
     Dosage: UNK
     Route: 003
     Dates: start: 20100410, end: 20100823
  3. HYALURONATE SODIUM [Concomitant]
     Dosage: UNK
     Route: 003
  4. LODOZ [Concomitant]
     Dosage: 1 DF, QD
     Route: 048
  5. LEXOMIL [Concomitant]
     Dosage: 0.25 DF, BID
     Route: 048
  6. DIPROSONE [Concomitant]
     Dosage: UNK
     Route: 003
  7. PIROXICAM [Concomitant]
  8. TOPALGIC [Concomitant]
     Dosage: 2 DF, TID
     Route: 048

REACTIONS (29)
  - ABDOMINAL PAIN UPPER [None]
  - ANAEMIA [None]
  - ANGINA PECTORIS [None]
  - ARRHYTHMIA [None]
  - ASTHENIA [None]
  - ATRIAL FIBRILLATION [None]
  - BLOOD ALBUMIN INCREASED [None]
  - BLOOD CREATININE INCREASED [None]
  - BLOOD PRESSURE DIASTOLIC DECREASED [None]
  - BLOOD UREA INCREASED [None]
  - BRAIN NATRIURETIC PEPTIDE DECREASED [None]
  - BUNDLE BRANCH BLOCK LEFT [None]
  - C-REACTIVE PROTEIN INCREASED [None]
  - CHEST PAIN [None]
  - CREATININE RENAL CLEARANCE [None]
  - DUODENAL ULCER [None]
  - GASTROINTESTINAL HAEMORRHAGE [None]
  - HAEMATEMESIS [None]
  - HELICOBACTER INFECTION [None]
  - HEMIPARESIS [None]
  - HYPONATRAEMIA [None]
  - MALNUTRITION [None]
  - PALLOR [None]
  - RENAL FAILURE [None]
  - SEPSIS [None]
  - SUPERINFECTION [None]
  - TACHYARRHYTHMIA [None]
  - TROPONIN INCREASED [None]
  - WHITE BLOOD CELL COUNT INCREASED [None]
